FAERS Safety Report 13452332 (Version 7)
Quarter: 2018Q1

REPORT INFORMATION
  Report Type: Report from Study
  Country: AU (occurrence: AU)
  Receive Date: 20170418
  Receipt Date: 20180206
  Transmission Date: 20180508
  Serious: Yes (Hospitalization, Other)
  Sender: FDA-Public Use
  Company Number: AU-REGENERON PHARMACEUTICALS, INC.-2017-14456

PATIENT

DRUGS (1)
  1. EYLEA [Suspect]
     Active Substance: AFLIBERCEPT
     Indication: DIABETIC RETINAL OEDEMA
     Dosage: UNK UNK, Q2MON
     Route: 031
     Dates: start: 20170201

REACTIONS (12)
  - Amnesia [Unknown]
  - Vision blurred [Not Recovered/Not Resolved]
  - Cataract operation [Unknown]
  - Feeling abnormal [Not Recovered/Not Resolved]
  - Blood cholesterol decreased [Not Recovered/Not Resolved]
  - Drug dose omission [Unknown]
  - Visual impairment [Unknown]
  - Eye disorder [Unknown]
  - Injection site pain [Not Recovered/Not Resolved]
  - Cataract operation [Unknown]
  - Hypotension [Not Recovered/Not Resolved]
  - Lung disorder [Not Recovered/Not Resolved]

NARRATIVE: CASE EVENT DATE: 201703
